FAERS Safety Report 11176790 (Version 1)
Quarter: 2015Q2

REPORT INFORMATION
  Report Type: Spontaneous
  Country: IN (occurrence: None)
  Receive Date: 20150608
  Receipt Date: 20150608
  Transmission Date: 20150821
  Serious: Yes (Hospitalization, Other)
  Sender: FDA-Public Use
  Company Number: IN2015GSK075771

PATIENT
  Sex: Male

DRUGS (4)
  1. STAVUDINE (STAVUDINE) [Suspect]
     Active Substance: STAVUDINE
     Indication: HIV TEST POSITIVE
     Route: 064
  2. LAMIVUDINE (LAMIVUDINE) [Suspect]
     Active Substance: LAMIVUDINE
     Indication: HIV TEST POSITIVE
     Route: 064
  3. NEVIRAPINE (NEVIRAPINE) [Suspect]
     Active Substance: NEVIRAPINE
     Indication: HIV TEST POSITIVE
     Route: 064
  4. NEVIRAPINE (NEVIRAPINE) [Suspect]
     Active Substance: NEVIRAPINE
     Indication: PROPHYLAXIS
     Route: 064

REACTIONS (5)
  - Lactic acidosis [None]
  - Maternal drugs affecting foetus [None]
  - Blood lactic acid decreased [None]
  - Lactate pyruvate ratio increased [None]
  - Developmental delay [None]
